FAERS Safety Report 10097025 (Version 1)
Quarter: 2014Q2

REPORT INFORMATION
  Report Type: Spontaneous
  Country: US (occurrence: US)
  Receive Date: 20140422
  Receipt Date: 20140422
  Transmission Date: 20141212
  Serious: No
  Sender: FDA-Public Use
  Company Number: US-GILEAD-2012-0064141

PATIENT
  Sex: Male

DRUGS (2)
  1. LETAIRIS [Suspect]
     Indication: EMPHYSEMA
     Route: 048
     Dates: start: 20110131
  2. ADCIRCA [Concomitant]

REACTIONS (1)
  - No therapeutic response [Unknown]
